FAERS Safety Report 9323717 (Version 2)
Quarter: 2013Q2

REPORT INFORMATION
  Report Type: Report from Study
  Country: AR (occurrence: AR)
  Receive Date: 20130603
  Receipt Date: 20130617
  Transmission Date: 20140414
  Serious: Yes (Disabling)
  Sender: FDA-Public Use
  Company Number: PHHY2013AR055312

PATIENT
  Sex: Female

DRUGS (2)
  1. EXFORGE D [Suspect]
     Indication: HYPERTENSION
     Dosage: 1 DF, (160/5/12.5 MG) DAILY
     Route: 048
     Dates: start: 201303
  2. EXFORGE D [Suspect]
     Dosage: 0.5 DF, (160/5/12.5 MG)
     Route: 048
     Dates: start: 201303

REACTIONS (4)
  - Gait disturbance [Recovering/Resolving]
  - Pain [Recovering/Resolving]
  - Dizziness [Not Recovered/Not Resolved]
  - Wrong technique in drug usage process [Unknown]
